FAERS Safety Report 10553321 (Version 1)
Quarter: 2014Q4

REPORT INFORMATION
  Report Type: Report from Study
  Country: US (occurrence: US)
  Receive Date: 20141030
  Receipt Date: 20141030
  Transmission Date: 20150529
  Serious: Yes (Hospitalization)
  Sender: FDA-Public Use
  Company Number: US-BIOGENIDEC-2014BI110431

PATIENT
  Age: 56 Year
  Sex: Male

DRUGS (1)
  1. TYSABRI [Suspect]
     Active Substance: NATALIZUMAB
     Indication: MULTIPLE SCLEROSIS
     Route: 042
     Dates: start: 20090605

REACTIONS (9)
  - Mobility decreased [Recovered/Resolved]
  - Tremor [Not Recovered/Not Resolved]
  - Drug dose omission [Recovered/Resolved]
  - Blood potassium decreased [Recovered/Resolved]
  - Fatigue [Recovered/Resolved]
  - Burnout syndrome [Recovered/Resolved]
  - Malaise [Recovered/Resolved]
  - Asthenia [Recovered/Resolved]
  - Multiple sclerosis [Unknown]

NARRATIVE: CASE EVENT DATE: 201409
